FAERS Safety Report 16084699 (Version 1)
Quarter: 2019Q1

REPORT INFORMATION
  Report Type: Spontaneous
  Country: IT (occurrence: IT)
  Receive Date: 20190318
  Receipt Date: 20190318
  Transmission Date: 20190418
  Serious: Yes (Other)
  Sender: FDA-Public Use
  Company Number: IT-ELI_LILLY_AND_COMPANY-IT201903005066

PATIENT
  Age: 61 Year
  Sex: Female
  Weight: 60 kg

DRUGS (3)
  1. FORSTEO [Suspect]
     Active Substance: TERIPARATIDE
     Indication: OSTEOPOROSIS
     Route: 058
     Dates: start: 20180201, end: 20180630
  2. SELG [Concomitant]
     Indication: CONSTIPATION
     Dosage: 4 UNK, UNKNOWN
     Route: 048
     Dates: start: 20120101, end: 20190304
  3. OMEPRAZEN [OMEPRAZOLE] [Concomitant]
     Indication: GASTRITIS
     Dosage: 20 MG, UNKNOWN
     Route: 048

REACTIONS (5)
  - Tremor [Recovered/Resolved]
  - Constipation [Recovered/Resolved]
  - Vertigo [Recovered/Resolved]
  - Confusional state [Recovered/Resolved]
  - Nausea [Recovered/Resolved]

NARRATIVE: CASE EVENT DATE: 20180615
